FAERS Safety Report 8481806-9 (Version None)
Quarter: 2012Q2

REPORT INFORMATION
  Report Type: 
  Country: None (occurrence: None)
  Receive Date: 20120402
  Receipt Date: 20110512
  Transmission Date: 20120825
  Serious: Yes (Hospitalization)
  Sender: FDA-Public Use
  Company Number: A-US2011-48755

PATIENT
  Age: 82 Year
  Sex: Female

DRUGS (2)
  1. VENTAVIS [Suspect]
     Indication: PULMONARY ARTERIAL HYPERTENSION
     Dosage: 20 MCG, RESPIRATORY
     Route: 055
     Dates: start: 20100127
  2. REVATIO (SILDENAFIL CITRTATE) [Concomitant]

REACTIONS (1)
  - DYSPNOEA [None]
